FAERS Safety Report 6167704-4 (Version None)
Quarter: 2009Q2

REPORT INFORMATION
  Report Type: 
  Country: None (occurrence: None)
  Receive Date: 20090424
  Receipt Date: 20090420
  Transmission Date: 20091009
  Serious: Yes (Disabling)
  Sender: FDA-Public Use
  Company Number: GB-MERCK-0904GBR00074

PATIENT
  Age: 63 Year
  Sex: Male

DRUGS (4)
  1. ZETIA [Suspect]
     Indication: BLOOD CHOLESTEROL INCREASED
     Route: 048
     Dates: start: 20080722, end: 20090327
  2. DICLOFENAC [Concomitant]
     Route: 065
     Dates: start: 20080226
  3. MEBEVERINE HYDROCHLORIDE [Concomitant]
     Route: 048
  4. SIMVASTATIN [Concomitant]
     Route: 048

REACTIONS (1)
  - GYNAECOMASTIA [None]
